FAERS Safety Report 13381569 (Version 1)
Quarter: 2017Q1

REPORT INFORMATION
  Report Type: Spontaneous
  Country: US (occurrence: US)
  Receive Date: 20170329
  Receipt Date: 20170329
  Transmission Date: 20170429
  Serious: Yes (Other)
  Sender: FDA-Public Use
  Company Number: US-ALLERGAN-1709985US

PATIENT
  Age: 57 Year
  Sex: Female

DRUGS (2)
  1. VIIBRYD [Suspect]
     Active Substance: VILAZODONE HYDROCHLORIDE
     Indication: MOOD ALTERED
     Dosage: 20 MG, QAM
     Route: 048
  2. DICLOFENAC SODIUM. [Suspect]
     Active Substance: DICLOFENAC SODIUM
     Indication: PRODUCT USED FOR UNKNOWN INDICATION
     Dosage: 75 MG, BID
     Route: 048

REACTIONS (8)
  - Fatigue [Unknown]
  - Renal disorder [Unknown]
  - Obesity [Unknown]
  - Osteoarthritis [Unknown]
  - Off label use [Unknown]
  - Major depression [Unknown]
  - Tobacco user [Unknown]
  - Musculoskeletal pain [Unknown]
